FAERS Safety Report 17115814 (Version 1)
Quarter: 2019Q4

REPORT INFORMATION
  Report Type: Spontaneous
  Country: US (occurrence: US)
  Receive Date: 20191112
  Receipt Date: 20191112
  Transmission Date: 20200122
  Serious: Yes (Hospitalization)
  Sender: FDA-Public Use
  Company Number: None

PATIENT
  Age: 11 Year
  Sex: Female

DRUGS (6)
  1. PERTZYE [Suspect]
     Active Substance: PANCRELIPASE AMYLASE\PANCRELIPASE LIPASE\PANCRELIPASE PROTEASE
     Indication: CYSTIC FIBROSIS
     Route: 048
     Dates: start: 20180726
  2. VITAMIN A [Concomitant]
     Active Substance: VITAMIN A
  3. URSODIOL. [Concomitant]
     Active Substance: URSODIOL
  4. SODIUM CHLORIDE. [Suspect]
     Active Substance: SODIUM CHLORIDE
  5. MEPHYTON [Concomitant]
     Active Substance: PHYTONADIONE
  6. PULMOZYME [Suspect]
     Active Substance: DORNASE ALFA
     Indication: CYSTIC FIBROSIS
     Dosage: ?          OTHER DOSE:1MG/1ML;?
     Route: 055
     Dates: start: 20190906

REACTIONS (1)
  - Pneumonia [None]

NARRATIVE: CASE EVENT DATE: 201910
